FAERS Safety Report 24927699 (Version 1)
Quarter: 2025Q1

REPORT INFORMATION
  Report Type: Spontaneous
  Country: TR (occurrence: TR)
  Receive Date: 20250205
  Receipt Date: 20250205
  Transmission Date: 20250409
  Serious: Yes (Hospitalization)
  Sender: Alora Pharma
  Company Number: TR-OSMOTICA PHARMACEUTICALS-2025ALO00038

PATIENT
  Age: 11 Year
  Sex: Female

DRUGS (3)
  1. METHYLPHENIDATE [Suspect]
     Active Substance: METHYLPHENIDATE
     Indication: Attention deficit hyperactivity disorder
     Dosage: 10 MG, 1X/DAY
  2. METOCLOPRAMIDE [Suspect]
     Active Substance: METOCLOPRAMIDE
     Indication: Nausea
  3. METOCLOPRAMIDE [Suspect]
     Active Substance: METOCLOPRAMIDE
     Indication: Vomiting

REACTIONS (2)
  - Substance-induced psychotic disorder [Recovered/Resolved]
  - Drug interaction [Recovered/Resolved]
